FAERS Safety Report 21242608 (Version 1)
Quarter: 2022Q3

REPORT INFORMATION
  Report Type: Spontaneous
  Country: MX (occurrence: None)
  Receive Date: 20220823
  Receipt Date: 20220823
  Transmission Date: 20221026
  Serious: Yes (Disabling, Other)
  Sender: FDA-Public Use
  Company Number: MX-ROCHE-3165013

PATIENT
  Age: 45 Year
  Sex: Female
  Weight: 68.6 kg

DRUGS (10)
  1. TOCILIZUMAB [Suspect]
     Active Substance: TOCILIZUMAB
     Indication: Rheumatoid arthritis
     Route: 042
     Dates: start: 202108
  2. TOCILIZUMAB [Suspect]
     Active Substance: TOCILIZUMAB
     Route: 042
     Dates: start: 202108
  3. LEFLUNOMIDE [Concomitant]
     Active Substance: LEFLUNOMIDE
  4. FOLIC ACID [Concomitant]
     Active Substance: FOLIC ACID
  5. OMEPRAZOLE [Concomitant]
     Active Substance: OMEPRAZOLE
  6. CALCIUM\CHOLECALCIFEROL [Concomitant]
     Active Substance: CALCIUM\CHOLECALCIFEROL
  7. NIFEDIPINE [Concomitant]
     Active Substance: NIFEDIPINE
  8. HYDROCORTISONE [Concomitant]
     Active Substance: HYDROCORTISONE
     Indication: Premedication
     Dosage: SINGLE DOSE
     Route: 042
  9. SULINDACO [Concomitant]
     Indication: Pain
     Dosage: IN CASE OF PAIN
  10. ACETAMINOPHEN\TRAMADOL [Concomitant]
     Active Substance: ACETAMINOPHEN\TRAMADOL
     Indication: Pain
     Dosage: 37.5 MG + 325 MG

REACTIONS (6)
  - COVID-19 [Recovered/Resolved with Sequelae]
  - Pain [Recovering/Resolving]
  - Arthritis [Recovering/Resolving]
  - Arthritis [Recovering/Resolving]
  - Arthritis [Recovering/Resolving]
  - Skin fissures [Unknown]

NARRATIVE: CASE EVENT DATE: 20220701
